FAERS Safety Report 5071983-4 (Version None)
Quarter: 2006Q3

REPORT INFORMATION
  Report Type: 
  Country: None (occurrence: None)
  Receive Date: 20060714
  Receipt Date: 20060530
  Transmission Date: 20061208
  Serious: No
  Sender: FDA-Public Use
  Company Number: 2006SP002264

PATIENT
  Age: 59 Year
  Sex: Female
  Weight: 62.5964 kg

DRUGS (4)
  1. LUNESTA [Suspect]
     Indication: CHRONIC FATIGUE SYNDROME
     Dosage: 1X;ORAL
     Route: 048
     Dates: start: 20060401, end: 20060401
  2. DOXEPIN [Concomitant]
  3. POTASSIUM [Concomitant]
  4. CELEXA [Concomitant]

REACTIONS (2)
  - DRUG INEFFECTIVE [None]
  - INSOMNIA [None]
